FAERS Safety Report 13946519 (Version 2)
Quarter: 2017Q3

REPORT INFORMATION
  Report Type: Spontaneous
  Country: IT (occurrence: IT)
  Receive Date: 20170907
  Receipt Date: 20170912
  Transmission Date: 20171128
  Serious: Yes (Other)
  Sender: FDA-Public Use
  Company Number: PHHY2017IT130664

PATIENT
  Age: 74 Year
  Sex: Male

DRUGS (1)
  1. IZBA [Suspect]
     Active Substance: TRAVOPROST
     Indication: OCULAR HYPERTENSION
     Route: 047

REACTIONS (2)
  - Hypertonia [Recovering/Resolving]
  - Conjunctival haemorrhage [Recovering/Resolving]

NARRATIVE: CASE EVENT DATE: 20170408
